FAERS Safety Report 24278657 (Version 1)
Quarter: 2024Q3

REPORT INFORMATION
  Report Type: Report from Study
  Country: US (occurrence: US)
  Receive Date: 20240903
  Receipt Date: 20240903
  Transmission Date: 20241016
  Serious: No
  Sender: SUNOVION
  Company Number: US-SUMITOMO PHARMA SWITZERLAND GMBH-2024SPA000229

PATIENT

DRUGS (3)
  1. ORGOVYX [Suspect]
     Active Substance: RELUGOLIX
     Indication: Prostate cancer
     Dosage: 360 MG
     Route: 048
     Dates: start: 20240404, end: 20240404
  2. ORGOVYX [Suspect]
     Active Substance: RELUGOLIX
     Dosage: 120 MG, QD
     Route: 048
     Dates: start: 20240405
  3. NUBEQA [Concomitant]
     Active Substance: DAROLUTAMIDE
     Dosage: UNK
     Route: 065

REACTIONS (14)
  - Muscular weakness [Unknown]
  - Fall [Unknown]
  - Hand fracture [Unknown]
  - Balance disorder [Unknown]
  - Bradyphrenia [Unknown]
  - Brain fog [Unknown]
  - General physical condition abnormal [Unknown]
  - Mental disorder [Unknown]
  - Haematoma [Unknown]
  - Prostatic specific antigen decreased [Unknown]
  - Blood testosterone decreased [Unknown]
  - Insomnia [Unknown]
  - Loss of libido [Unknown]
  - Fatigue [Unknown]
